FAERS Safety Report 20896652 (Version 1)
Quarter: 2022Q2

REPORT INFORMATION
  Report Type: Spontaneous
  Country: US (occurrence: None)
  Receive Date: 20220530
  Receipt Date: 20220530
  Transmission Date: 20220721
  Serious: Yes (Other)
  Sender: FDA-Public Use
  Company Number: None

PATIENT
  Age: 63 Year
  Sex: Female
  Weight: 54 kg

DRUGS (1)
  1. MIRCERA [Suspect]
     Active Substance: METHOXY POLYETHYLENE GLYCOL-EPOETIN BETA
     Indication: Anaemia
     Dosage: OTHER QUANTITY : 100 ML;?OTHER FREQUENCY : 2X PER MONTH;?
     Route: 030
     Dates: start: 20220523, end: 20220523

REACTIONS (3)
  - Dyspnoea [None]
  - Hypoaesthesia [None]
  - Blood pressure increased [None]

NARRATIVE: CASE EVENT DATE: 20220523
